FAERS Safety Report 6905821-9 (Version None)
Quarter: 2010Q3

REPORT INFORMATION
  Report Type: 
  Country: None (occurrence: None)
  Receive Date: 20100804
  Receipt Date: 20100726
  Transmission Date: 20110219
  Serious: Yes (Disabling)
  Sender: FDA-Public Use
  Company Number: JP-ROCHE-704811

PATIENT
  Sex: Female
  Weight: 57 kg

DRUGS (2)
  1. AVASTIN [Suspect]
     Indication: DIABETIC RETINAL OEDEMA
     Route: 031
     Dates: start: 20090413, end: 20090413
  2. INSULIN [Concomitant]
     Dosage: NOTE: DOSAGE IS UNCERTAIN.
     Route: 058

REACTIONS (1)
  - OPTIC ISCHAEMIC NEUROPATHY [None]
